FAERS Safety Report 6222731-3 (Version None)
Quarter: 2009Q2

REPORT INFORMATION
  Report Type: 
  Country: None (occurrence: None)
  Receive Date: 20090609
  Receipt Date: 20090609
  Transmission Date: 20091009
  Serious: No
  Sender: FDA-Public Use
  Company Number: None

PATIENT
  Age: 49 Year
  Sex: Female
  Weight: 63.05 kg

DRUGS (1)
  1. CYMBALTA [Suspect]
     Indication: ANXIETY
     Dosage: 60 MG PER DAY
     Dates: start: 20090220, end: 20090527

REACTIONS (5)
  - BACK PAIN [None]
  - DIZZINESS [None]
  - FEELING HOT [None]
  - MENTAL DISORDER [None]
  - URINARY RETENTION [None]
